FAERS Safety Report 6760535-3 (Version None)
Quarter: 2010Q2

REPORT INFORMATION
  Report Type: 
  Country: None (occurrence: None)
  Receive Date: 20100608
  Receipt Date: 20100525
  Transmission Date: 20101027
  Serious: Yes (Other)
  Sender: FDA-Public Use
  Company Number: PHHY2010TW35123

PATIENT
  Age: 88 Year
  Sex: Male

DRUGS (6)
  1. RIVASTIGMINE [Suspect]
     Indication: DEMENTIA ALZHEIMER'S TYPE
     Dosage: 1.5 MG, BID
     Dates: start: 20081101
  2. RIVASTIGMINE [Suspect]
     Dosage: 1.5 MG IN MORNING AND 3 MG AT NIGHT
     Dates: start: 20081201
  3. RIVASTIGMINE [Suspect]
     Dosage: 1.5 MG IN MORNING
  4. RIVASTIGMINE [Suspect]
     Dosage: 1.5 MG IN MORNING AND 1.5 MG IN EVENING
     Dates: start: 20090101
  5. RIVASTIGMINE [Suspect]
     Dosage: 1.5 MG IN MORNING AND 3 MG IN EVENING
     Dates: start: 20090201
  6. CLONAZEPAM [Concomitant]
     Indication: RAPID EYE MOVEMENTS SLEEP ABNORMAL
     Dosage: 0.5 MG, QD
     Dates: start: 20090101

REACTIONS (11)
  - ABNORMAL BEHAVIOUR [None]
  - BRADYKINESIA [None]
  - COGNITIVE DISORDER [None]
  - EXCORIATION [None]
  - FALL [None]
  - MOANING [None]
  - PARASOMNIA [None]
  - RAPID EYE MOVEMENTS SLEEP ABNORMAL [None]
  - SCREAMING [None]
  - SELF INJURIOUS BEHAVIOUR [None]
  - SLEEP TALKING [None]
